FAERS Safety Report 23880352 (Version 1)
Quarter: 2024Q2

REPORT INFORMATION
  Report Type: Spontaneous
  Country: ES (occurrence: ES)
  Receive Date: 20240521
  Receipt Date: 20240521
  Transmission Date: 20240715
  Serious: Yes (Other)
  Sender: FDA-Public Use
  Company Number: ES-SANDOZ-SDZ2024ES049460

PATIENT
  Age: 21 Year
  Sex: Male

DRUGS (1)
  1. ALPRAZOLAM [Suspect]
     Active Substance: ALPRAZOLAM
     Indication: Product used for unknown indication
     Dosage: OVER 40 MG, QD
     Route: 065

REACTIONS (2)
  - Schizophrenia [Unknown]
  - Drug withdrawal syndrome [Unknown]
